FAERS Safety Report 10619751 (Version 1)
Quarter: 2014Q4

REPORT INFORMATION
  Report Type: Spontaneous
  Country: US (occurrence: None)
  Receive Date: 20141201
  Receipt Date: 20141201
  Transmission Date: 20150529
  Serious: No
  Sender: FDA-Public Use
  Company Number: None

PATIENT
  Age: 32 Year
  Sex: Male
  Weight: 75.75 kg

DRUGS (1)
  1. CIALIS [Suspect]
     Active Substance: TADALAFIL
     Indication: ERECTILE DYSFUNCTION
     Dosage: 1 PILL AS NEEDED TAKEN BY MOUTH
     Route: 048
     Dates: start: 20141129, end: 20141129

REACTIONS (4)
  - Myalgia [None]
  - Insomnia [None]
  - Discomfort [None]
  - Nasal congestion [None]

NARRATIVE: CASE EVENT DATE: 20141129
